FAERS Safety Report 10313755 (Version 1)
Quarter: 2014Q3

REPORT INFORMATION
  Report Type: Report from Study
  Country: GB (occurrence: GB)
  Receive Date: 20140718
  Receipt Date: 20140718
  Transmission Date: 20150326
  Serious: Yes (Death, Hospitalization, Other)
  Sender: FDA-Public Use
  Company Number: GB-JNJFOC-20140709133

PATIENT
  Sex: Male
  Weight: 49.5 kg

DRUGS (3)
  1. PREDNISOLONE. [Concomitant]
     Active Substance: PREDNISOLONE
     Route: 065
     Dates: start: 20110318
  2. ESCITALOPRAM [Concomitant]
     Active Substance: ESCITALOPRAM OXALATE
     Route: 065
     Dates: start: 20110427
  3. USTEKINUMAB [Suspect]
     Active Substance: USTEKINUMAB
     Indication: PSORIASIS
     Route: 058
     Dates: start: 20110520

REACTIONS (8)
  - Depression [Unknown]
  - Sepsis [Unknown]
  - Condition aggravated [Unknown]
  - Hypothermia [Unknown]
  - Malnutrition [Unknown]
  - Psoriasis [Unknown]
  - Hypothyroidism [Unknown]
  - Death [Fatal]

NARRATIVE: CASE EVENT DATE: 2011
